FAERS Safety Report 5499278-5 (Version None)
Quarter: 2007Q4

REPORT INFORMATION
  Report Type: 
  Country: None (occurrence: None)
  Receive Date: 20071026
  Receipt Date: 20071015
  Transmission Date: 20080405
  Serious: Yes (Congenital Anomaly, Other)
  Sender: FDA-Public Use
  Company Number: US-AMGEN-US248060

PATIENT
  Sex: Male

DRUGS (11)
  1. ENBREL [Suspect]
     Indication: PSORIASIS
     Route: 064
     Dates: start: 20060503, end: 20061105
  2. PRENATAL VITAMINS [Concomitant]
     Route: 064
     Dates: start: 20060404, end: 20061030
  3. OPTINATE [Concomitant]
     Route: 064
     Dates: start: 20060404, end: 20060919
  4. NYQUIL [Concomitant]
     Route: 064
     Dates: start: 20060214, end: 20060214
  5. WELLBUTRIN [Concomitant]
     Route: 064
     Dates: start: 20060911, end: 20061015
  6. ANTIBIOTIC NOS [Concomitant]
     Route: 064
     Dates: start: 20060911, end: 20060915
  7. UNISOM [Concomitant]
     Route: 064
     Dates: start: 20060210, end: 20060925
  8. TYLENOL (CAPLET) [Concomitant]
     Route: 064
     Dates: start: 20060923, end: 20060923
  9. ENSURE PLUS [Concomitant]
     Route: 064
     Dates: start: 20060403, end: 20060503
  10. UNSPECIFIED ANESTHETIC [Concomitant]
     Route: 064
     Dates: start: 20060626, end: 20060626
  11. ULTRAVATE [Concomitant]

REACTIONS (2)
  - HYDROCELE [None]
  - INGUINAL HERNIA [None]
